FAERS Safety Report 12773935 (Version 1)
Quarter: 2016Q3

REPORT INFORMATION
  Report Type: Spontaneous
  Country: JP (occurrence: JP)
  Receive Date: 20160923
  Receipt Date: 20160923
  Transmission Date: 20161109
  Serious: Yes (Other)
  Sender: FDA-Public Use
  Company Number: JP-ASTRAZENECA-2016SF00609

PATIENT
  Age: 19 Year
  Sex: Male

DRUGS (6)
  1. LAC-B [Suspect]
     Active Substance: BIFIDOBACTERIUM SPP.
     Dosage: DOSE UNKNOWN
     Route: 065
  2. PENTASA [Suspect]
     Active Substance: MESALAMINE
     Route: 048
  3. SYMBICORT [Suspect]
     Active Substance: BUDESONIDE\FORMOTEROL FUMARATE DIHYDRATE
     Indication: ASTHMA
     Route: 055
     Dates: start: 20150601
  4. PREDONEMA [Suspect]
     Active Substance: PREDNISOLONE SODIUM PHOSPHATE
     Dosage: DOSE UNKNOWN
     Route: 054
  5. MIYA-BM [Suspect]
     Active Substance: CLOSTRIDIUM BUTYRICUM SPORES STRAIN M-55
     Dosage: DOSE UNKNOWN
     Route: 065
  6. IMURAN [Suspect]
     Active Substance: AZATHIOPRINE
     Dosage: DOSE UNKNOWN
     Route: 065

REACTIONS (1)
  - Angina unstable [Unknown]

NARRATIVE: CASE EVENT DATE: 20160915
